FAERS Safety Report 14876552 (Version 1)
Quarter: 2018Q2

REPORT INFORMATION
  Report Type: Spontaneous
  Country: US (occurrence: US)
  Receive Date: 20180424
  Receipt Date: 20180424
  Transmission Date: 20180711
  Serious: Yes (Life-Threatening, Other)
  Sender: FDA-Public Use
  Company Number: None

PATIENT
  Age: 22 Year
  Sex: Male
  Weight: 56.25 kg

DRUGS (6)
  1. MAGNESIUM CITRATE. [Concomitant]
     Active Substance: MAGNESIUM CITRATE
  2. OXCARBAZEPINE. [Concomitant]
     Active Substance: OXCARBAZEPINE
  3. VITAMIN SHOPPE BRANDED MEN^S ONCE DAILY VITAMIN [Concomitant]
  4. CETIRIZINE [Concomitant]
     Active Substance: CETIRIZINE HYDROCHLORIDE
  5. CLONAZEPAM. [Suspect]
     Active Substance: CLONAZEPAM
     Indication: PANIC DISORDER
     Dosage: ?          QUANTITY:90 TABLET(S);?
     Route: 048
     Dates: start: 20180404
  6. CLONAZEPAM. [Suspect]
     Active Substance: CLONAZEPAM
     Indication: EPILEPSY
     Dosage: ?          QUANTITY:90 TABLET(S);?
     Route: 048
     Dates: start: 20180404

REACTIONS (12)
  - Heart rate increased [None]
  - Blood pressure increased [None]
  - Psychotic disorder [None]
  - Depersonalisation/derealisation disorder [None]
  - Product substitution issue [None]
  - Seizure [None]
  - Underdose [None]
  - Withdrawal syndrome [None]
  - Paraesthesia [None]
  - Anxiety [None]
  - Derealisation [None]
  - Drug ineffective [None]

NARRATIVE: CASE EVENT DATE: 20180409
